FAERS Safety Report 6707684-3 (Version None)
Quarter: 2010Q2

REPORT INFORMATION
  Report Type: 
  Country: None (occurrence: None)
  Receive Date: 20100503
  Receipt Date: 20090526
  Transmission Date: 20101027
  Serious: No
  Sender: FDA-Public Use
  Company Number: US-ASTRAZENECA-2009UW13410

PATIENT
  Age: 53 Year
  Sex: Female
  Weight: 70.8 kg

DRUGS (5)
  1. NEXIUM [Suspect]
     Indication: BARRETT'S OESOPHAGUS
     Route: 048
     Dates: start: 20060101
  2. CRESTOR [Concomitant]
     Route: 048
  3. BELLADONNE [Concomitant]
  4. ACTONEL [Concomitant]
  5. CALCIUM CITRICAL [Concomitant]

REACTIONS (3)
  - OSTEOPENIA [None]
  - OSTEOPOROSIS [None]
  - WHITE BLOOD CELL COUNT DECREASED [None]
